FAERS Safety Report 14848875 (Version 1)
Quarter: 2018Q2

REPORT INFORMATION
  Report Type: Spontaneous
  Country: US (occurrence: US)
  Receive Date: 20180419
  Receipt Date: 20180419
  Transmission Date: 20180711
  Serious: No
  Sender: FDA-Public Use
  Company Number: None

PATIENT
  Age: 61 Year
  Sex: Female
  Weight: 64.35 kg

DRUGS (8)
  1. GABAPENTIN. [Concomitant]
     Active Substance: GABAPENTIN
  2. TIZANIDINE. [Concomitant]
     Active Substance: TIZANIDINE
  3. FENTANYL TRANSDERMAL SYSTEM [Suspect]
     Active Substance: FENTANYL
     Indication: BACK PAIN
     Dosage: ?          OTHER STRENGTH:MCG/HR;QUANTITY:1 PATCH(ES);OTHER FREQUENCY:48 HOURS;?
     Route: 062
     Dates: start: 20180404, end: 20180412
  4. OXYCODONE [Concomitant]
     Active Substance: OXYCODONE
  5. FAMCICLOVIR. [Concomitant]
     Active Substance: FAMCICLOVIR
  6. EQUATE COMPLETE MULTIVITAMIN [Concomitant]
     Active Substance: VITAMINS
  7. HYDROCHLOROTHIAZIDE. [Concomitant]
     Active Substance: HYDROCHLOROTHIAZIDE
  8. FENTANYL TRANSDERMAL SYSTEM [Concomitant]
     Active Substance: FENTANYL

REACTIONS (19)
  - Hyperhidrosis [None]
  - Dysphagia [None]
  - Dyskinesia [None]
  - Liver disorder [None]
  - Dry mouth [None]
  - Diarrhoea [None]
  - Anxiety [None]
  - Abdominal pain upper [None]
  - Flank pain [None]
  - Toxicity to various agents [None]
  - Malaise [None]
  - Pruritus generalised [None]
  - Nausea [None]
  - Tremor [None]
  - Asthenia [None]
  - Dyspnoea [None]
  - Renal disorder [None]
  - Abdominal discomfort [None]
  - Nervous system disorder [None]

NARRATIVE: CASE EVENT DATE: 20180404
